FAERS Safety Report 17175187 (Version 1)
Quarter: 2019Q4

REPORT INFORMATION
  Report Type: Spontaneous
  Country: US (occurrence: US)
  Receive Date: 20191126
  Receipt Date: 20191126
  Transmission Date: 20200122
  Serious: Yes (Hospitalization)
  Sender: FDA-Public Use
  Company Number: None

PATIENT
  Age: 49 Year
  Sex: Female

DRUGS (1)
  1. BENLYSTA [Suspect]
     Active Substance: BELIMUMAB
     Indication: SYSTEMIC LUPUS ERYTHEMATOSUS
     Route: 058
     Dates: start: 20190703

REACTIONS (5)
  - Infection [None]
  - Rash [None]
  - Arthritis infective [None]
  - Stomatitis [None]
  - Platelet count decreased [None]

NARRATIVE: CASE EVENT DATE: 201911
